FAERS Safety Report 18036053 (Version 1)
Quarter: 2020Q3

REPORT INFORMATION
  Report Type: Spontaneous
  Country: US (occurrence: US)
  Receive Date: 20200716
  Receipt Date: 20200716
  Transmission Date: 20201103
  Serious: Yes (Hospitalization)
  Sender: FDA-Public Use
  Company Number: None

PATIENT
  Age: 65 Year
  Sex: Male
  Weight: 112 kg

DRUGS (2)
  1. GABAPENTIN (GABAPENTIN 600MG TAB) [Suspect]
     Active Substance: GABAPENTIN
     Indication: RADICULOPATHY
     Route: 048
     Dates: start: 20200220, end: 20200223
  2. TIZANIDINE (TIZANIDINE HCL 4MG TAB (1/2 TAB)) [Suspect]
     Active Substance: TIZANIDINE HYDROCHLORIDE
     Route: 048
     Dates: start: 20200220, end: 20200224

REACTIONS (3)
  - Acute kidney injury [None]
  - Somnolence [None]
  - Wound dehiscence [None]

NARRATIVE: CASE EVENT DATE: 20200223
